FAERS Safety Report 12884827 (Version 2)
Quarter: 2017Q1

REPORT INFORMATION
  Report Type: Spontaneous
  Country: US (occurrence: US)
  Receive Date: 20161026
  Receipt Date: 20170109
  Transmission Date: 20170428
  Serious: Yes (Other)
  Sender: FDA-Public Use
  Company Number: US-SUN PHARMACEUTICAL INDUSTRIES LTD-2016US-126389

PATIENT
  Age: 55 Year
  Sex: Male

DRUGS (2)
  1. TESTOSTERONE. [Suspect]
     Active Substance: TESTOSTERONE
     Indication: HYPOGONADISM MALE
     Dosage: 50 MG/WEEK
     Route: 065
     Dates: start: 2009
  2. HUMAN CHORIONIC GONADOTROPIN [Interacting]
     Active Substance: GONADOTROPHIN, CHORIONIC
     Indication: HYPOGONADISM
     Dosage: 500 UNITS/WEEK
     Route: 065
     Dates: start: 2009

REACTIONS (3)
  - Pulmonary embolism [Recovered/Resolved]
  - Deep vein thrombosis [Recovered/Resolved]
  - Drug-disease interaction [Recovered/Resolved]
